FAERS Safety Report 11035602 (Version 1)
Quarter: 2015Q2

REPORT INFORMATION
  Report Type: Spontaneous
  Country: TR (occurrence: TR)
  Receive Date: 20150415
  Receipt Date: 20150415
  Transmission Date: 20150821
  Serious: Yes (Hospitalization)
  Sender: FDA-Public Use
  Company Number: TR-009507513-1504TUR011213

PATIENT
  Age: 47 Year
  Sex: Male

DRUGS (4)
  1. MIRTAZAPINE. [Suspect]
     Active Substance: MIRTAZAPINE
     Indication: OBSESSIVE THOUGHTS
  2. DIAZEPAM. [Concomitant]
     Active Substance: DIAZEPAM
     Dosage: WAS MEDICATED WITH DIAZEPAM 5MG/DAY AS RECOMMENDED BY AN UROLOGIST, POST-OPERATIVELY
  3. MIRTAZAPINE. [Suspect]
     Active Substance: MIRTAZAPINE
     Indication: ALCOHOL ABUSE
     Dosage: 30 MG/DAY
     Route: 048
  4. DIAZEPAM. [Concomitant]
     Active Substance: DIAZEPAM
     Dosage: 10 MG/DAY

REACTIONS (2)
  - Intentional product use issue [Unknown]
  - Priapism [Recovered/Resolved]
